FAERS Safety Report 14233513 (Version 1)
Quarter: 2017Q4

REPORT INFORMATION
  Report Type: Report from Study
  Country: GB (occurrence: GB)
  Receive Date: 20171128
  Receipt Date: 20171128
  Transmission Date: 20180321
  Serious: Yes (Other)
  Sender: FDA-Public Use
  Company Number: GB-TEVA-2017-GB-826432

PATIENT
  Age: 50 Year
  Sex: Female

DRUGS (1)
  1. COPAXONE [Suspect]
     Active Substance: GLATIRAMER ACETATE
     Dosage: 20 MILLIGRAM/MILLILITERS DAILY;
     Route: 058
     Dates: start: 20170914

REACTIONS (8)
  - Seizure [Unknown]
  - Dyspnoea [Unknown]
  - Feeling abnormal [Unknown]
  - Thrombosis [Unknown]
  - Malaise [Unknown]
  - Adverse drug reaction [Unknown]
  - Hypersensitivity [Unknown]
  - Nodule [Unknown]

NARRATIVE: CASE EVENT DATE: 20171109
